FAERS Safety Report 5174984-0 (Version None)
Quarter: 2006Q4

REPORT INFORMATION
  Report Type: 
  Country: None (occurrence: None)
  Receive Date: 20061214
  Receipt Date: 20060530
  Transmission Date: 20070319
  Serious: No
  Sender: FDA-Public Use
  Company Number: US-AMGEN-KDL181340

PATIENT
  Sex: Female

DRUGS (3)
  1. ENBREL [Suspect]
     Indication: PSORIATIC ARTHROPATHY
     Route: 058
     Dates: start: 20050101, end: 20060420
  2. ENBREL [Suspect]
     Indication: PSORIASIS
  3. ENBREL [Suspect]
     Indication: DRUG USE FOR UNKNOWN INDICATION

REACTIONS (10)
  - BALANCE DISORDER [None]
  - BLINDNESS [None]
  - CONDITION AGGRAVATED [None]
  - DEAFNESS [None]
  - FEELING ABNORMAL [None]
  - MIGRAINE [None]
  - PSORIASIS [None]
  - THINKING ABNORMAL [None]
  - TREMOR [None]
  - VERTIGO [None]
